FAERS Safety Report 7910073-7 (Version None)
Quarter: 2011Q4

REPORT INFORMATION
  Report Type: 
  Country: None (occurrence: None)
  Receive Date: 20111111
  Receipt Date: 20111027
  Transmission Date: 20120403
  Serious: Yes (Hospitalization, Other)
  Sender: FDA-Public Use
  Company Number: DE-ROCHE-786843

PATIENT
  Age: 68 Year
  Weight: 78 kg

DRUGS (1)
  1. XELODA [Suspect]
     Indication: COLORECTAL CANCER
     Route: 065
     Dates: start: 20080121, end: 20080408

REACTIONS (7)
  - RENAL VEIN THROMBOSIS [None]
  - ASTHENIA [None]
  - GENERAL PHYSICAL HEALTH DETERIORATION [None]
  - PYREXIA [None]
  - DECREASED APPETITE [None]
  - BODY TEMPERATURE INCREASED [None]
  - FATIGUE [None]
